FAERS Safety Report 16821085 (Version 1)
Quarter: 2019Q3

REPORT INFORMATION
  Report Type: Spontaneous
  Country: US (occurrence: US)
  Receive Date: 20190918
  Receipt Date: 20190918
  Transmission Date: 20191005
  Serious: Yes (Other)
  Sender: FDA-Public Use
  Company Number: US-LUPIN PHARMACEUTICALS INC.-2019-05997

PATIENT
  Age: 73 Year
  Sex: Female
  Weight: 51 kg

DRUGS (3)
  1. SOLOSEC [Suspect]
     Active Substance: SECNIDAZOLE
     Indication: VAGINAL INFECTION
     Dosage: 2 GRAM, SINGLE, WITH APPLESAUCE EXACTLY AS DIRECTED
     Route: 048
     Dates: start: 20190831, end: 20190831
  2. IBANDRONATE SODIUM. [Concomitant]
     Active Substance: IBANDRONATE SODIUM
     Indication: OSTEOPENIA
     Dosage: UNK
     Route: 065
  3. ATORVASTATIN [Concomitant]
     Active Substance: ATORVASTATIN
     Indication: BLOOD CHOLESTEROL ABNORMAL
     Dosage: UNK
     Route: 065

REACTIONS (5)
  - Tooth fracture [Unknown]
  - Drug ineffective [Unknown]
  - Speech disorder [Unknown]
  - Vulvovaginal mycotic infection [Unknown]
  - Tongue coated [Unknown]

NARRATIVE: CASE EVENT DATE: 201908
